FAERS Safety Report 21813027 (Version 1)
Quarter: 2023Q1

REPORT INFORMATION
  Report Type: Spontaneous
  Country: US (occurrence: None)
  Receive Date: 20230102
  Receipt Date: 20230102
  Transmission Date: 20230418
  Serious: Yes (Other)
  Sender: FDA-Public Use
  Company Number: None

PATIENT
  Age: 61 Year
  Sex: Female
  Weight: 99 kg

DRUGS (9)
  1. TERBINAFINE [Suspect]
     Active Substance: TERBINAFINE
     Indication: Fungal infection
     Dosage: FREQUENCY : DAILY;?
     Route: 048
     Dates: start: 20221212, end: 20221223
  2. METOPROLOL [Concomitant]
     Active Substance: METOPROLOL
  3. BUPROPION [Concomitant]
     Active Substance: BUPROPION
  4. PRISTIQ EXTENDED-RELEASE [Concomitant]
     Active Substance: DESVENLAFAXINE SUCCINATE
  5. LEVOTHYROXINE [Concomitant]
     Active Substance: LEVOTHYROXINE
  6. ATORVASTATIN [Concomitant]
     Active Substance: ATORVASTATIN
  7. Multi B Vitamin [Concomitant]
  8. LOW DOSE ASPIRIN [Concomitant]
     Active Substance: ASPIRIN
  9. MAGNESIUM [Concomitant]
     Active Substance: MAGNESIUM

REACTIONS (9)
  - Rash erythematous [None]
  - Urticaria [None]
  - Pruritus [None]
  - Insomnia [None]
  - Agitation [None]
  - Furuncle [None]
  - Pustule [None]
  - Chills [None]
  - Influenza like illness [None]

NARRATIVE: CASE EVENT DATE: 20221218
